FAERS Safety Report 10737301 (Version 1)
Quarter: 2015Q1

REPORT INFORMATION
  Report Type: Spontaneous
  Country: US (occurrence: None)
  Receive Date: 20150122
  Receipt Date: 20150122
  Transmission Date: 20150721
  Serious: Yes (Other)
  Sender: FDA-Public Use
  Company Number: None

PATIENT
  Age: 10 Year
  Sex: Male
  Weight: 33.57 kg

DRUGS (2)
  1. GENERIC EQUIVALENT FOR INTUNIV 4 MG [Suspect]
     Active Substance: GUANFACINE HYDROCHLORIDE
  2. RITALIN LA [Concomitant]
     Active Substance: METHYLPHENIDATE HYDROCHLORIDE

REACTIONS (4)
  - Product substitution issue [None]
  - Aggression [None]
  - Middle insomnia [None]
  - Insomnia [None]

NARRATIVE: CASE EVENT DATE: 20150115
